FAERS Safety Report 7228970-7 (Version None)
Quarter: 2011Q1

REPORT INFORMATION
  Report Type: 
  Country: None (occurrence: None)
  Receive Date: 20110117
  Receipt Date: 20110105
  Transmission Date: 20110831
  Serious: Yes (Hospitalization, Other)
  Sender: FDA-Public Use
  Company Number: US-ELI_LILLY_AND_COMPANY-US201008003657

PATIENT
  Sex: Female

DRUGS (12)
  1. COD LIVER OIL [Concomitant]
  2. STOOL SOFTENER [Concomitant]
  3. FORTEO [Suspect]
     Indication: OSTEOPOROSIS
     Dosage: 20 UG, DAILY (1/D)
     Dates: end: 20101212
  4. LOVASTATIN [Concomitant]
  5. LORTAB [Concomitant]
  6. COUMADIN [Concomitant]
  7. SENNA [Concomitant]
  8. NOVOLOG [Concomitant]
  9. CALCIUM [Concomitant]
  10. SYNTHROID [Concomitant]
  11. ASPIRIN [Concomitant]
  12. MULTI-VITAMIN [Concomitant]

REACTIONS (6)
  - HIP ARTHROPLASTY [None]
  - ARTHRALGIA [None]
  - MUSCULOSKELETAL PAIN [None]
  - PELVIC FRACTURE [None]
  - IMPAIRED HEALING [None]
  - PAIN IN EXTREMITY [None]
